FAERS Safety Report 15899466 (Version 1)
Quarter: 2019Q1

REPORT INFORMATION
  Report Type: Spontaneous
  Country: FR (occurrence: FR)
  Receive Date: 20190201
  Receipt Date: 20190201
  Transmission Date: 20190417
  Serious: Yes (Hospitalization)
  Sender: FDA-Public Use
  Company Number: FR-AUROBINDO-AUR-APL-2019-003814

PATIENT
  Age: 86 Year
  Sex: Female
  Weight: 92 kg

DRUGS (8)
  1. TARDYFERON B9 [FERROUS SULFATE;FOLIC ACID] [Suspect]
     Active Substance: FERROUS SULFATE\FOLIC ACID
     Indication: HYPOVITAMINOSIS
     Dosage: 1 DOSAGE FORM, ONCE A DAY, 1 LE MATIN
     Route: 048
     Dates: start: 20181115, end: 20181127
  2. FLUOXETINE [Suspect]
     Active Substance: FLUOXETINE HYDROCHLORIDE
     Indication: DEPRESSION
     Dosage: 40 MILLIGRAM, ONCE A DAY, LE MATIN
     Route: 048
     Dates: start: 20181115
  3. COAPROVEL [Suspect]
     Active Substance: HYDROCHLOROTHIAZIDE\IRBESARTAN
     Indication: HYPERTENSION
     Dosage: 1 DOSAGE FORM, ONCE A DAY
     Route: 048
     Dates: start: 20181115, end: 20181127
  4. RISPERDAL [Suspect]
     Active Substance: RISPERIDONE
     Indication: COGNITIVE DISORDER
     Dosage: 0.25 MILLILITER, ONCE A DAY, 0.25 ML LE SOIR
     Route: 048
     Dates: start: 20180912
  5. KARDEGIC [Suspect]
     Active Substance: ASPIRIN DL-LYSINE
     Indication: THROMBOSIS PROPHYLAXIS
     Dosage: 75 MG LE SOIR
     Route: 048
     Dates: start: 20181115
  6. SALBUTAMOL [Suspect]
     Active Substance: ALBUTEROL
     Indication: ASTHMA
     Dosage: 100 MICROGRAM
     Route: 055
     Dates: start: 20181115, end: 20181127
  7. LERCANIDIPINE [Suspect]
     Active Substance: LERCANIDIPINE
     Indication: HYPERTENSION
     Dosage: 10 MILLIGRAM, ONCE A DAY, 10 MG LE MATIN
     Route: 048
     Dates: start: 20181115, end: 20181129
  8. PANTOPRAZOLE [Suspect]
     Active Substance: PANTOPRAZOLE
     Indication: PROPHYLAXIS AGAINST GASTROINTESTINAL ULCER
     Dosage: 20 MILLIGRAM, ONCE A DAY, 20 MG LE MATIN
     Route: 048
     Dates: start: 20181115, end: 20181127

REACTIONS (2)
  - Oedema peripheral [Recovered/Resolved]
  - Dyspnoea [Recovered/Resolved]

NARRATIVE: CASE EVENT DATE: 20181115
